FAERS Safety Report 18427190 (Version 1)
Quarter: 2020Q4

REPORT INFORMATION
  Report Type: Spontaneous
  Country: US (occurrence: US)
  Receive Date: 20201026
  Receipt Date: 20201026
  Transmission Date: 20210114
  Serious: No
  Sender: FDA-Public Use
  Company Number: US-PFIZER INC-2020406180

PATIENT
  Age: 62 Year
  Sex: Female
  Weight: 86.18 kg

DRUGS (25)
  1. LYRICA [Suspect]
     Active Substance: PREGABALIN
     Indication: NERVE INJURY
     Dosage: UNK
  2. LYRICA [Suspect]
     Active Substance: PREGABALIN
     Dosage: 300 MG (100MG CAPSULE UP TO THREE A DAY)
  3. KLOR-CON [Concomitant]
     Active Substance: POTASSIUM CHLORIDE
     Indication: BLOOD POTASSIUM DECREASED
     Dosage: 1 DF, 3X/DAY (1 DF, 3X/DAY (M-10 TABLET, ONE TABLET BY MOUTH THREE TIMES A DAY))
     Route: 048
  4. VITAMIN D3 [Concomitant]
     Active Substance: CHOLECALCIFEROL
     Dosage: 2000 IU
  5. BUDESONIDE. [Concomitant]
     Active Substance: BUDESONIDE
     Indication: HYPERSENSITIVITY
     Dosage: 2 SPRAYS EACH NOSTRIL
  6. LYRICA [Suspect]
     Active Substance: PREGABALIN
     Dosage: 200 MG (SHE CAN ONLY TAKE TWO A DAY)
  7. CELECOXIB. [Concomitant]
     Active Substance: CELECOXIB
     Indication: INFLAMMATION
     Dosage: 200 MG, DAILY (200MG CAPSULE ONE CAPSULE EVERY DAY)
  8. ALLEGRA [Concomitant]
     Active Substance: FEXOFENADINE HYDROCHLORIDE
     Indication: HYPERSENSITIVITY
     Dosage: 180 MG, 1X/DAY
  9. VITAMIN D3 [Concomitant]
     Active Substance: CHOLECALCIFEROL
     Dosage: 50 UG, 1X/DAY
  10. VITAMIN C [Concomitant]
     Active Substance: ASCORBIC ACID
     Dosage: 500 MG, DAILY
  11. PROAIR HFA [Concomitant]
     Active Substance: ALBUTEROL SULFATE
     Indication: ASTHMA
     Dosage: UNK
  12. ENALAPRIL MALEATE. [Concomitant]
     Active Substance: ENALAPRIL MALEATE
     Indication: BLOOD PRESSURE ABNORMAL
     Dosage: 20 MG, DAILY(ONE TABLET BY MOUTH)
     Route: 048
  13. SIMVASTATIN. [Concomitant]
     Active Substance: SIMVASTATIN
     Dosage: 20 MG, 1X/DAY
  14. PULMICORT FLEXHALER [Concomitant]
     Active Substance: BUDESONIDE
     Dosage: 180 UG
  15. LYRICA [Suspect]
     Active Substance: PREGABALIN
     Dosage: 100 MG
  16. CYCLOBENZAPRINE. [Concomitant]
     Active Substance: CYCLOBENZAPRINE
     Indication: MUSCLE SPASMS
     Dosage: 10 MG, AS NEEDED
  17. FUROSEMIDE. [Concomitant]
     Active Substance: FUROSEMIDE
     Indication: POLYURIA
     Dosage: 20 MG (ONE DAY, SHE WILL TAKE TWO AND THE NEXT DAY SHE WILL TAKE THREE)
  18. CALCIUM WITH VITAMIN D [CALCIUM CARBONATE;COLECALCIFEROL] [Concomitant]
     Indication: VITAMIN D DEFICIENCY
     Dosage: 600MG CALCIUM AND 20MG MCG OF VITAMIN D
  19. EPIPEN [Concomitant]
     Active Substance: EPINEPHRINE
     Dosage: 0.3 MG (0.3MG AUTO INJECTOR)
  20. TYLENOL [Concomitant]
     Active Substance: ACETAMINOPHEN
     Indication: PAIN
     Dosage: UNK
  21. ASPIRIN [ACETYLSALICYLIC ACID] [Concomitant]
     Active Substance: ASPIRIN
     Indication: PAIN
     Dosage: UNK
  22. LYRICA [Suspect]
     Active Substance: PREGABALIN
     Dosage: 75 MG
  23. VITAMIN B6 [Concomitant]
     Active Substance: PYRIDOXINE HYDROCHLORIDE
     Indication: NERVE INJURY
     Dosage: 100 MG
  24. VITAMIN B12 [Concomitant]
     Active Substance: CYANOCOBALAMIN
     Indication: NERVE INJURY
     Dosage: 1000 UG
  25. OMEGA 3 [FISH OIL] [Concomitant]
     Active Substance: FISH OIL
     Dosage: 1080 MG

REACTIONS (5)
  - Product use in unapproved indication [Unknown]
  - Product dose omission in error [Unknown]
  - Intentional product use issue [Unknown]
  - Paraesthesia [Unknown]
  - Off label use [Unknown]
